FAERS Safety Report 10733610 (Version 1)
Quarter: 2015Q1

REPORT INFORMATION
  Report Type: Report from Study
  Country: US (occurrence: US)
  Receive Date: 20150123
  Receipt Date: 20150123
  Transmission Date: 20150721
  Serious: Yes (Other)
  Sender: FDA-Public Use
  Company Number: US-GLAXOSMITHKLINE-A0897359A

PATIENT
  Age: 49 Year
  Sex: Female
  Weight: 92 kg

DRUGS (23)
  1. PROCHLORPERAZINE. [Concomitant]
     Active Substance: PROCHLORPERAZINE
  2. CETAPHIL [Concomitant]
     Active Substance: AVOBENZONE\OCTOCRYLENE\TRICLOSAN
  3. CIPROFLOXACIN. [Concomitant]
     Active Substance: CIPROFLOXACIN
  4. TOPIRAMATE. [Concomitant]
     Active Substance: TOPIRAMATE
  5. DABRAFENIB [Suspect]
     Active Substance: DABRAFENIB
     Indication: NEOPLASM
     Dosage: 35 MG, BID
     Route: 048
     Dates: start: 20091007
  6. LORAZEPAM. [Concomitant]
     Active Substance: LORAZEPAM
  7. RANITIDINE HYDROCHLORIDE. [Concomitant]
     Active Substance: RANITIDINE HYDROCHLORIDE
  8. UREA HYDROGEN PEROXIDE [Concomitant]
  9. PREDNISONE. [Concomitant]
     Active Substance: PREDNISONE
  10. DIPHENHYDRAMINE [Concomitant]
     Active Substance: DIPHENHYDRAMINE
  11. HYDROCODONE [Concomitant]
     Active Substance: HYDROCODONE
  12. PARACETAMOL [Concomitant]
     Active Substance: ACETAMINOPHEN
  13. IBUPROFEN. [Concomitant]
     Active Substance: IBUPROFEN
  14. FLUTICASONE [Concomitant]
     Active Substance: FLUTICASONE\FLUTICASONE PROPIONATE
     Route: 055
  15. CHLORPHENIRAMINE + HYDROCODONE [Concomitant]
  16. SENNA [Concomitant]
     Active Substance: SENNA LEAF\SENNOSIDES\SENNOSIDES A AND B
  17. CALCIUM CITRATE [Concomitant]
     Active Substance: CALCIUM CITRATE
  18. CETIRIZINE [Concomitant]
     Active Substance: CETIRIZINE HYDROCHLORIDE
  19. MULTIVITAMIN [Concomitant]
     Active Substance: VITAMINS
  20. PANTOPRAZOLE [Concomitant]
     Active Substance: PANTOPRAZOLE SODIUM
  21. METOCLOPRAMIDE. [Concomitant]
     Active Substance: METOCLOPRAMIDE
  22. TRIAMCINOLONE ACETONIDE + BENZALCONIUM CHLORIDE + SALICYLIC ACID [Concomitant]
  23. CEFTRIAXONE. [Concomitant]
     Active Substance: CEFTRIAXONE

REACTIONS (2)
  - Iridocyclitis [Recovered/Resolved]
  - Amaurosis fugax [Recovered/Resolved]

NARRATIVE: CASE EVENT DATE: 20101201
